FAERS Safety Report 5902280-X (Version None)
Quarter: 2008Q3

REPORT INFORMATION
  Report Type: 
  Country: None (occurrence: None)
  Receive Date: 20080929
  Receipt Date: 20080715
  Transmission Date: 20090109
  Serious: No
  Sender: FDA-Public Use
  Company Number: US-BAUSCH-2008BL003102

PATIENT
  Age: 60 Year
  Sex: Male

DRUGS (2)
  1. ALAWAY [Suspect]
     Indication: EYE ALLERGY
     Route: 047
     Dates: start: 20080515, end: 20080712
  2. ADVANCED EYE RELIEF/DRY EYE/REJUVENATION LUBRICANT EYE DROPS [Concomitant]
     Indication: KERATOCONJUNCTIVITIS SICCA

REACTIONS (1)
  - EYE IRRITATION [None]
